FAERS Safety Report 19157959 (Version 1)
Quarter: 2021Q2

REPORT INFORMATION
  Report Type: Spontaneous
  Country: US (occurrence: US)
  Receive Date: 20210419
  Receipt Date: 20210419
  Transmission Date: 20210717
  Serious: Yes (Hospitalization)
  Sender: FDA-Public Use
  Company Number: None

PATIENT
  Age: 32 Year
  Sex: Female
  Weight: 59.9 kg

DRUGS (12)
  1. ROCURONIUM [Concomitant]
     Active Substance: ROCURONIUM BROMIDE
  2. NEOSTIGMINE. [Concomitant]
     Active Substance: NEOSTIGMINE METHYLSULFATE
  3. MIDAZOLAM. [Concomitant]
     Active Substance: MIDAZOLAM
  4. CEFAZOLIN [Concomitant]
     Active Substance: CEFAZOLIN
  5. LACTATED RINGERS SOLUTION [Concomitant]
     Active Substance: CALCIUM CHLORIDE\POTASSIUM CHLORIDE\SODIUM CHLORIDE\SODIUM LACTATE
  6. LIDOCAINE. [Concomitant]
     Active Substance: LIDOCAINE
  7. PROPOFOL. [Concomitant]
     Active Substance: PROPOFOL
  8. DEXAMETHASONE. [Concomitant]
     Active Substance: DEXAMETHASONE
  9. ONDANSETRON [Concomitant]
     Active Substance: ONDANSETRON
  10. KETAMINE [Concomitant]
     Active Substance: KETAMINE
  11. GLYCOPYRROLATE. [Suspect]
     Active Substance: GLYCOPYRROLATE
     Dosage: ?          OTHER FREQUENCY:ONCE;?
     Route: 042
  12. FENTANYL. [Concomitant]
     Active Substance: FENTANYL

REACTIONS (3)
  - Chest discomfort [None]
  - Blood pressure decreased [None]
  - Troponin increased [None]

NARRATIVE: CASE EVENT DATE: 20210419
